FAERS Safety Report 12172208 (Version 1)
Quarter: 2016Q1

REPORT INFORMATION
  Report Type: Spontaneous
  Country: US (occurrence: US)
  Receive Date: 20160311
  Receipt Date: 20160311
  Transmission Date: 20160526
  Serious: Yes (Hospitalization)
  Sender: FDA-Public Use
  Company Number: US-FRESENIUS KABI-FK201601241

PATIENT
  Age: 65 Year
  Sex: Female

DRUGS (2)
  1. CISPLATIN (MANUFACTURER UNKNOWN) [Suspect]
     Active Substance: CISPLATIN
     Indication: OVARIAN CANCER STAGE III
     Route: 042
  2. TAXOL [Suspect]
     Active Substance: PACLITAXEL
     Indication: OVARIAN CANCER STAGE III
     Route: 033

REACTIONS (6)
  - Peritonitis bacterial [Recovered/Resolved]
  - Clostridium difficile colitis [Recovered/Resolved]
  - Leukocytosis [Recovered/Resolved]
  - Ascites [Recovered/Resolved]
  - Hepatic vein thrombosis [Recovered/Resolved]
  - Transaminases increased [Recovered/Resolved]
